FAERS Safety Report 5381950-9 (Version None)
Quarter: 2007Q3

REPORT INFORMATION
  Report Type: 
  Country: None (occurrence: None)
  Receive Date: 20070709
  Receipt Date: 20070629
  Transmission Date: 20080115
  Serious: Yes (Other)
  Sender: FDA-Public Use
  Company Number: US-GENENTECH-238198

PATIENT
  Sex: Female
  Weight: 95 kg

DRUGS (6)
  1. RAPTIVA [Suspect]
     Indication: DERMATITIS ATOPIC
     Dosage: 1 MG/KG, 1/WEEK
     Route: 058
     Dates: start: 20061121
  2. ALBUTEROL [Concomitant]
     Indication: DRUG USE FOR UNKNOWN INDICATION
  3. FLOVENT [Concomitant]
     Indication: DRUG USE FOR UNKNOWN INDICATION
  4. CLARITIN [Concomitant]
     Indication: DRUG USE FOR UNKNOWN INDICATION
  5. BIRTH CONTROL PILLS (UNK INGREDIENTS) [Concomitant]
     Indication: DRUG USE FOR UNKNOWN INDICATION
  6. PROTOPIC [Concomitant]
     Indication: DRUG USE FOR UNKNOWN INDICATION
     Dosage: 1 %, UNK
     Dates: start: 20061101

REACTIONS (2)
  - FACIAL PALSY [None]
  - ORAL MUCOSAL BLISTERING [None]
